FAERS Safety Report 4780874-5 (Version None)
Quarter: 2005Q3

REPORT INFORMATION
  Report Type: 
  Country: None (occurrence: None)
  Receive Date: 20050914
  Receipt Date: 20050307
  Transmission Date: 20060218
  Serious: Yes (Hospitalization)
  Sender: FDA-Public Use
  Company Number: 163-20785-05030197

PATIENT
  Age: 16 Month
  Sex: Male

DRUGS (2)
  1. THALOMID [Suspect]
     Indication: BRAIN NEOPLASM
     Dosage: 100 MG, QHS, ORAL
     Route: 048
     Dates: start: 20041006, end: 20041113
  2. TEMOZOLOMIDE (TEMOZOLOMIDE) [Suspect]
     Indication: BRAIN NEOPLASM
     Dosage: 200 MG/M2, ORAL
     Route: 048
     Dates: start: 20041006, end: 20041113

REACTIONS (3)
  - FUNGAL INFECTION [None]
  - PNEUMONIA [None]
  - SEPSIS [None]
